FAERS Safety Report 8727073 (Version 2)
Quarter: 2015Q2

REPORT INFORMATION
  Report Type: Report from Study
  Country: US (occurrence: US)
  Receive Date: 20120816
  Receipt Date: 20150407
  Transmission Date: 20150821
  Serious: Yes (Death, Other)
  Sender: FDA-Public Use
  Company Number: US-ROCHE-1100851

PATIENT
  Sex: Male

DRUGS (5)
  1. NITROGLYCERIN. [Concomitant]
     Active Substance: NITROGLYCERIN
     Route: 042
  2. HUMAN INSULIN [Concomitant]
     Active Substance: INSULIN HUMAN
     Dosage: 50 UNITS
     Route: 065
  3. ASPIRIN. [Concomitant]
     Active Substance: ASPIRIN
     Route: 065
  4. ACTIVASE [Suspect]
     Active Substance: ALTEPLASE
     Indication: ACUTE MYOCARDIAL INFARCTION
     Route: 065
  5. ATROPINE [Concomitant]
     Active Substance: ATROPINE
     Route: 042

REACTIONS (11)
  - Cardio-respiratory arrest [Fatal]
  - Electrocardiogram ST segment elevation [Unknown]
  - Seizure [Unknown]
  - Dyspnoea [Unknown]
  - Chest pain [Unknown]
  - Bradycardia [Unknown]
  - Asthenia [Unknown]
  - Hyperhidrosis [Unknown]
  - Hypoventilation [Unknown]
  - General physical health deterioration [Unknown]
  - Nausea [Unknown]
